FAERS Safety Report 20176859 (Version 2)
Quarter: 2022Q1

REPORT INFORMATION
  Report Type: Spontaneous
  Country: FR (occurrence: FR)
  Receive Date: 20211213
  Receipt Date: 20220105
  Transmission Date: 20220423
  Serious: Yes (Hospitalization, Congenital Anomaly, Other)
  Sender: FDA-Public Use
  Company Number: FR-ABBVIE-21K-056-4193905-00

PATIENT
  Sex: Male

DRUGS (1)
  1. VALPROATE SODIUM [Suspect]
     Active Substance: VALPROATE SODIUM
     Indication: Maternal exposure timing unspecified
     Route: 064

REACTIONS (18)
  - Cardiac murmur [Unknown]
  - Ventricular septal defect [Unknown]
  - Right ventricular hypertrophy [Unknown]
  - Pulmonary artery stenosis congenital [Unknown]
  - Limb deformity [Unknown]
  - Myoclonic epilepsy [Unknown]
  - Foot deformity [Unknown]
  - Dysmorphism [Unknown]
  - Learning disorder [Unknown]
  - Ear, nose and throat disorder [Unknown]
  - Personal relationship issue [Unknown]
  - Memory impairment [Unknown]
  - Behaviour disorder [Unknown]
  - Nasopharyngitis [Unknown]
  - Conjunctivitis [Unknown]
  - Premature baby [Unknown]
  - Foetal exposure during pregnancy [Unknown]
  - Language disorder [Unknown]

NARRATIVE: CASE EVENT DATE: 20060101
